FAERS Safety Report 6146200-4 (Version None)
Quarter: 2009Q2

REPORT INFORMATION
  Report Type: 
  Country: None (occurrence: None)
  Receive Date: 20090407
  Receipt Date: 20090331
  Transmission Date: 20091009
  Serious: Yes (Other)
  Sender: FDA-Public Use
  Company Number: CA-ALLERGAN-0813866US

PATIENT

DRUGS (2)
  1. BOTOX [Suspect]
     Indication: QUADRIPLEGIA
     Dosage: 300 UNITS, SINGLE
     Route: 030
  2. CIPROFLOXACIN [Concomitant]
     Indication: PROPHYLAXIS

REACTIONS (1)
  - ASTHENIA [None]
